FAERS Safety Report 10635579 (Version 1)
Quarter: 2014Q4

REPORT INFORMATION
  Report Type: Spontaneous
  Country: US (occurrence: US)
  Receive Date: 20141205
  Receipt Date: 20141205
  Transmission Date: 20150529
  Serious: No
  Sender: FDA-Public Use
  Company Number: US-BIOMARINAP-US-2014-104882

PATIENT
  Age: 13 Year
  Sex: Male

DRUGS (1)
  1. KUVAN [Suspect]
     Active Substance: SAPROPTERIN DIHYDROCHLORIDE
     Indication: PHENYLKETONURIA
     Dosage: 1000 MG, QD
     Route: 048
     Dates: start: 20100421

REACTIONS (3)
  - Abdominal discomfort [Unknown]
  - Psychomotor hyperactivity [Unknown]
  - Dyspepsia [Unknown]

NARRATIVE: CASE EVENT DATE: 20141201
